FAERS Safety Report 4771469-8 (Version None)
Quarter: 2005Q3

REPORT INFORMATION
  Report Type: 
  Country: None (occurrence: None)
  Receive Date: 20050915
  Receipt Date: 20050830
  Transmission Date: 20060218
  Serious: Yes (Death, Life-Threatening, Hospitalization)
  Sender: FDA-Public Use
  Company Number: 2005-00342

PATIENT
  Age: 69 Year
  Sex: Male
  Weight: 85.5 kg

DRUGS (6)
  1. VELCADE [Suspect]
     Indication: MANTLE CELL LYMPHOMA RECURRENT
     Dosage: 2.73 MG, INTRAVENOUS
     Route: 042
     Dates: start: 20050118, end: 20050215
  2. ACYCLOVIR [Concomitant]
  3. COUMADIN [Concomitant]
  4. COMPAZINE [Concomitant]
  5. PHENERGAN [Concomitant]
  6. ZOFRAN [Concomitant]

REACTIONS (24)
  - ACIDOSIS [None]
  - ACUTE RESPIRATORY FAILURE [None]
  - ASTHENIA [None]
  - BLOOD CREATINE PHOSPHOKINASE MB INCREASED [None]
  - BLOOD SODIUM DECREASED [None]
  - CARDIAC ARREST [None]
  - CARDIO-RESPIRATORY ARREST [None]
  - COAGULOPATHY [None]
  - COMA [None]
  - MENTAL STATUS CHANGES [None]
  - NAUSEA [None]
  - ORAL INTAKE REDUCED [None]
  - PERFORMANCE STATUS DECREASED [None]
  - PNEUMONIA [None]
  - PNEUMONIA STREPTOCOCCAL [None]
  - RENAL FAILURE [None]
  - RENAL FAILURE ACUTE [None]
  - SEPSIS [None]
  - SEPTIC SHOCK [None]
  - SHOCK [None]
  - STAPHYLOCOCCAL INFECTION [None]
  - TACHYCARDIA [None]
  - THROMBOCYTOPENIA [None]
  - VOMITING [None]
